FAERS Safety Report 6181171-6 (Version None)
Quarter: 2009Q2

REPORT INFORMATION
  Report Type: 
  Country: None (occurrence: None)
  Receive Date: 20090501
  Receipt Date: 20090114
  Transmission Date: 20091009
  Serious: Yes (Other)
  Sender: FDA-Public Use
  Company Number: 000226

PATIENT

DRUGS (16)
  1. PARACETAMOL WITH CODEINE PHOSPHATE (CODEINE PHOSPHATE AND PARACETAMOL) [Suspect]
     Dosage: (MORE THAN 8 TABLETS OF CODEINE 30 MG AND PARACETAMOL 500 MG IN COMBINATION DAILY ORAL)
     Route: 048
  2. CODEINE SUL TAB [Concomitant]
  3. OXYCODONE HCL [Concomitant]
  4. DEXTROPROPOXYPHENE [Concomitant]
  5. CALCITRIOL [Concomitant]
  6. FUROSEMIDE [Concomitant]
  7. METOPROLOL [Concomitant]
  8. DOTHIEPIN [Concomitant]
  9. RAMIPRIL [Concomitant]
  10. CELECOXIB [Concomitant]
  11. ALLOPURINOL [Concomitant]
  12. ACETAZOLAMIDE [Concomitant]
  13. SODIUM BICARBONATE IN PLASTIC CONTAINER [Concomitant]
  14. ASPIRIN [Concomitant]
  15. PREDNISOLONE [Concomitant]
  16. FLUNITRAZEPAM [Concomitant]

REACTIONS (6)
  - ALANINE AMINOTRANSFERASE INCREASED [None]
  - ASPARTATE AMINOTRANSFERASE INCREASED [None]
  - BLOOD ALKALINE PHOSPHATASE INCREASED [None]
  - DEAFNESS BILATERAL [None]
  - DEAFNESS NEUROSENSORY [None]
  - MACROCYTOSIS [None]
